FAERS Safety Report 14832836 (Version 1)
Quarter: 2018Q2

REPORT INFORMATION
  Report Type: Spontaneous
  Country: US (occurrence: US)
  Receive Date: 20180501
  Receipt Date: 20180501
  Transmission Date: 20180711
  Serious: Yes (Other)
  Sender: FDA-Public Use
  Company Number: US-BAYER-2018-082348

PATIENT
  Sex: Female

DRUGS (1)
  1. DR. SCHOLLS ONE STEP CORN REMOVERS [Suspect]
     Active Substance: SALICYLIC ACID
     Dosage: UNK

REACTIONS (6)
  - Chemical peel of skin [Unknown]
  - Cellulitis [Unknown]
  - Pain [Unknown]
  - Product use complaint [None]
  - Skin ulcer [Unknown]
  - Gait disturbance [Unknown]
